FAERS Safety Report 5242641-8 (Version None)
Quarter: 2007Q1

REPORT INFORMATION
  Report Type: 
  Country: None (occurrence: None)
  Receive Date: 20070221
  Receipt Date: 20070209
  Transmission Date: 20070707
  Serious: Yes (Other)
  Sender: FDA-Public Use
  Company Number: DE-ROCHE-464990

PATIENT
  Sex: Female

DRUGS (4)
  1. CELLCEPT [Suspect]
     Indication: LUPUS NEPHRITIS
     Route: 065
     Dates: start: 20030815
  2. CELLCEPT [Suspect]
     Dosage: REDUCED DOSAGE
     Route: 065
  3. CELLCEPT [Suspect]
     Dosage: DOSE REDUCED AS TREATMENT FOR SAE'S.
     Route: 065
  4. ANTIHYPERTENSIVE NOS [Concomitant]
     Dosage: REPORTED AS ANTIHYPERTENSIVE DRUGS NOS.

REACTIONS (11)
  - ARTHRALGIA [None]
  - BLOOD GLUCOSE INCREASED [None]
  - DIZZINESS [None]
  - ERUCTATION [None]
  - FORMICATION [None]
  - HEADACHE [None]
  - MALAISE [None]
  - MYOPATHY TOXIC [None]
  - NEUROPATHY [None]
  - VERTIGO [None]
  - VOMITING [None]
